FAERS Safety Report 5722370-4 (Version None)
Quarter: 2008Q2

REPORT INFORMATION
  Report Type: 
  Country: None (occurrence: None)
  Receive Date: 20080429
  Receipt Date: 20071016
  Transmission Date: 20081010
  Serious: No
  Sender: FDA-Public Use
  Company Number: US-ASTRAZENECA-2007UW24118

PATIENT
  Age: 76 Year
  Sex: Female
  Weight: 62.6 kg

DRUGS (6)
  1. NEXIUM [Suspect]
     Indication: REFLUX GASTRITIS
     Route: 048
     Dates: start: 20020101
  2. CALTRATE [Concomitant]
  3. ATENOLOL [Concomitant]
  4. LIBRAX [Concomitant]
  5. VALIUM [Concomitant]
  6. FOSAMAX [Concomitant]
     Dates: start: 20030101

REACTIONS (1)
  - CALCIUM DEFICIENCY [None]
